FAERS Safety Report 9305818 (Version 1)
Quarter: 2013Q2

REPORT INFORMATION
  Report Type: Spontaneous
  Country: US (occurrence: US)
  Receive Date: 20130523
  Receipt Date: 20130523
  Transmission Date: 20140414
  Serious: No
  Sender: FDA-Public Use
  Company Number: US-PFIZER INC-2013154352

PATIENT
  Sex: Female

DRUGS (4)
  1. ESTRADIOL CYPIONATE [Suspect]
     Dosage: 5 MG, UNK
  2. DEPO-ESTRADIOL [Suspect]
     Dosage: 1/2 CC
  3. TESTOSTERONE CIPIONATE [Suspect]
     Dosage: UNK
  4. VITAMIN B12 [Concomitant]
     Dosage: UNK

REACTIONS (3)
  - Alopecia [Unknown]
  - Hair growth abnormal [Unknown]
  - Drug dose omission [Unknown]
